FAERS Safety Report 8482556-5 (Version None)
Quarter: 2012Q3

REPORT INFORMATION
  Report Type: 
  Country: None (occurrence: None)
  Receive Date: 20120702
  Receipt Date: 20120622
  Transmission Date: 20120928
  Serious: Yes (Other)
  Sender: FDA-Public Use
  Company Number: US-ASTRAZENECA-2012SE42373

PATIENT
  Age: 61 Year
  Sex: Female
  Weight: 55.8 kg

DRUGS (2)
  1. NEXIUM [Suspect]
     Route: 048
     Dates: end: 20090101
  2. NEXIUM [Suspect]
     Route: 048
     Dates: start: 20090101

REACTIONS (4)
  - GASTRIC DISORDER [None]
  - MUSCLE SPASMS [None]
  - POLYP [None]
  - STRESS [None]
